FAERS Safety Report 11363020 (Version 1)
Quarter: 2015Q3

REPORT INFORMATION
  Report Type: Spontaneous
  Country: DE (occurrence: None)
  Receive Date: 20150807
  Receipt Date: 20150807
  Transmission Date: 20151125
  Serious: Yes (Life-Threatening)
  Sender: FDA-Public Use
  Company Number: DE-AGG-07-2015-0618

PATIENT
  Age: 69 Year
  Sex: Male
  Weight: 80 kg

DRUGS (9)
  1. TIROFIBAN HCL [Suspect]
     Active Substance: TIROFIBAN HYDROCHLORIDE
     Indication: ANTIPLATELET THERAPY
     Route: 042
     Dates: start: 20070125, end: 20070125
  2. TIROFIBAN HCL [Suspect]
     Active Substance: TIROFIBAN HYDROCHLORIDE
     Indication: ANTIPLATELET THERAPY
     Route: 042
     Dates: start: 20070125, end: 20070125
  3. ACETYLSALICYLIC ACID [Concomitant]
     Active Substance: ASPIRIN
  4. CLOPIDOGREL [Concomitant]
     Active Substance: CLOPIDOGREL BISULFATE
  5. STATIN [Concomitant]
     Active Substance: UNSPECIFIED INGREDIENT
  6. PROTON PUMP INHIBITOR [Concomitant]
     Active Substance: UNSPECIFIED INGREDIENT
  7. ACE-INHIBITOR [Concomitant]
     Active Substance: UNSPECIFIED INGREDIENT
  8. TIROFIBAN HCL [Suspect]
     Active Substance: TIROFIBAN HYDROCHLORIDE
     Indication: ANTIPLATELET THERAPY
     Route: 042
     Dates: start: 20070125, end: 20070125
  9. TIROFIBAN HCL [Suspect]
     Active Substance: TIROFIBAN HYDROCHLORIDE
     Indication: ANTIPLATELET THERAPY
     Route: 042
     Dates: start: 20070125, end: 20070125

REACTIONS (2)
  - Haemothorax [None]
  - Haemoglobin decreased [None]

NARRATIVE: CASE EVENT DATE: 20070126
